FAERS Safety Report 5908657-0 (Version None)
Quarter: 2008Q4

REPORT INFORMATION
  Report Type: 
  Country: None (occurrence: None)
  Receive Date: 20081001
  Receipt Date: 20080916
  Transmission Date: 20090506
  Serious: Yes (Hospitalization)
  Sender: FDA-Public Use
  Company Number: 230705J08USA

PATIENT
  Age: 40 Year
  Sex: Female
  Weight: 63.4 kg

DRUGS (6)
  1. REBIF [Suspect]
     Indication: MULTIPLE SCLEROSIS
     Dosage: 44 MCG, 3 IN 1 WEEKS, SUBCUTANEOUS
     Route: 058
     Dates: start: 20040102
  2. IBUPROFEN [Concomitant]
  3. ZOLOFT [Concomitant]
  4. WELLBUTRIN [Concomitant]
  5. VITAMIN D [Concomitant]
  6. FISH OIL (FISH OIL) [Concomitant]

REACTIONS (9)
  - AMNESIA [None]
  - ANXIETY [None]
  - CONDITION AGGRAVATED [None]
  - DEPRESSION [None]
  - INJECTION SITE ERYTHEMA [None]
  - INJECTION SITE MASS [None]
  - INJECTION SITE REACTION [None]
  - MULTIPLE SCLEROSIS [None]
  - MUSCLE SPASMS [None]
